FAERS Safety Report 9630694 (Version 1)
Quarter: 2013Q4

REPORT INFORMATION
  Report Type: Spontaneous
  Country: US (occurrence: None)
  Receive Date: 20131015
  Receipt Date: 20131015
  Transmission Date: 20140711
  Serious: Yes (Death)
  Sender: FDA-Public Use
  Company Number: 2013AP008652

PATIENT
  Age: 63 Year
  Sex: Female

DRUGS (7)
  1. AMLODIPINE BESYLATE TABLETS [Suspect]
     Route: 048
  2. OLANZAPINE [Suspect]
     Route: 048
  3. LISINOPRIL TABLETS [Suspect]
     Route: 048
  4. RISPERIDONE [Suspect]
     Route: 048
  5. METOPROLOL [Suspect]
     Route: 048
  6. VALPROIC ACID [Suspect]
     Route: 048
  7. ACETAMINOPHEN W/ HYDROCODONE BITARTRATE [Suspect]
     Route: 048

REACTIONS (2)
  - Completed suicide [None]
  - Incorrect dose administered [None]
